FAERS Safety Report 6230826-3 (Version None)
Quarter: 2009Q2

REPORT INFORMATION
  Report Type: 
  Country: None (occurrence: None)
  Receive Date: 20090611
  Receipt Date: 20090602
  Transmission Date: 20091009
  Serious: Yes (Hospitalization)
  Sender: FDA-Public Use
  Company Number: ADR2202009 (BFARM REF NO.: DE-BFARM-09066381)

PATIENT
  Age: 60 Year
  Sex: Male

DRUGS (18)
  1. CIPROFLAXACIN [Suspect]
     Indication: TRACHEOBRONCHITIS
     Dosage: 500 MG BID ORAL
     Route: 048
     Dates: start: 20090310, end: 20090320
  2. COTRIMHEXAL FORTE? TABLETS (SULFAMETHOXAZOLE TRIMETHOPRIM) [Concomitant]
  3. TAZOBAC? IV (PIPERACILLIN AND TAZOBACTAM) [Concomitant]
  4. ZITHROMAX? PFIZER (AZITHROMYCIN) [Concomitant]
  5. CELLCEPT? (MYCOPHENOLATE MOFETIL) [Concomitant]
  6. DECORTIN-H? (PREDNISOLONE) [Concomitant]
  7. DUROGESIC ? (FENTANYL) [Concomitant]
  8. FALHITHROM HEXAL? (PHENPROCOUMON) [Concomitant]
  9. GABAPENTIN [Concomitant]
  10. LOCOL? (FLUVASTATIN SODIUM) [Concomitant]
  11. MAGNESIOCARD /GFR/? (MAGNESIUM ASPARTATE HYDROCHLORIDE) [Concomitant]
  12. NOVALGIN /SCH/? (METAMIZOLE SODIUM MONOHYDRATE) [Concomitant]
  13. PANTOZOL? (PANTOPRAZOLE) [Concomitant]
  14. RAPAMUNE? (SIROLIMUS) [Concomitant]
  15. SPIRIVA PFIZER? (TIOTROPIUM BROMIDE) INHALATION POWDER [Concomitant]
  16. TORASEMIDE [Concomitant]
  17. VIAGRA? (SILDENAFIL CITRATE) [Concomitant]
  18. VITAMIN D3 (CHOLECALCIFEROL) CHEWABLE TABLETS [Concomitant]

REACTIONS (1)
  - GASTROENTERITIS CLOSTRIDIAL [None]
